FAERS Safety Report 22392333 (Version 1)
Quarter: 2023Q2

REPORT INFORMATION
  Report Type: Spontaneous
  Country: JP (occurrence: JP)
  Receive Date: 20230601
  Receipt Date: 20230601
  Transmission Date: 20230722
  Serious: Yes (Other)
  Sender: FDA-Public Use
  Company Number: JP-002147023-NVSJ2023JP005769

PATIENT
  Age: 50 Year
  Sex: Male

DRUGS (1)
  1. CERTICAN [Suspect]
     Active Substance: EVEROLIMUS
     Indication: Transplant rejection
     Dosage: BEFORE MEALS
     Route: 048
     Dates: start: 2013

REACTIONS (1)
  - Femoral artery aneurysm [Not Recovered/Not Resolved]
